FAERS Safety Report 12694571 (Version 3)
Quarter: 2016Q3

REPORT INFORMATION
  Report Type: Report from Study
  Country: US (occurrence: US)
  Receive Date: 20160829
  Receipt Date: 20160929
  Transmission Date: 20161109
  Serious: Yes (Other)
  Sender: FDA-Public Use
  Company Number: US-ABBVIE-16K-163-1707943-00

PATIENT
  Sex: Female

DRUGS (3)
  1. HUMIRA [Suspect]
     Active Substance: ADALIMUMAB
     Route: 058
     Dates: start: 20160923
  2. HUMIRA [Suspect]
     Active Substance: ADALIMUMAB
     Indication: COLITIS ULCERATIVE
     Dosage: ONE TIME DOSE
     Route: 058
     Dates: start: 20160812, end: 20160812
  3. HUMIRA [Suspect]
     Active Substance: ADALIMUMAB
     Dosage: DAY 29
     Route: 058
     Dates: start: 20160909, end: 20160909

REACTIONS (9)
  - Diarrhoea [Unknown]
  - Rectal haemorrhage [Not Recovered/Not Resolved]
  - Insomnia [Unknown]
  - Drug effect decreased [Unknown]
  - Activities of daily living impaired [Unknown]
  - Decreased appetite [Unknown]
  - Haematochezia [Unknown]
  - Anaemia [Unknown]
  - Frequent bowel movements [Unknown]

NARRATIVE: CASE EVENT DATE: 2016
